FAERS Safety Report 17348091 (Version 1)
Quarter: 2020Q1

REPORT INFORMATION
  Report Type: Spontaneous
  Country: US (occurrence: US)
  Receive Date: 20200114
  Receipt Date: 20200114
  Transmission Date: 20200409
  Serious: Yes (Hospitalization, Disabling, Other)
  Sender: FDA-Public Use
  Company Number: None

PATIENT
  Age: 51 Year
  Sex: Female
  Weight: 47.63 kg

DRUGS (9)
  1. GABAPENTIN. [Concomitant]
     Active Substance: GABAPENTIN
  2. OMEGAS [Concomitant]
  3. HUMIRA [Suspect]
     Active Substance: ADALIMUMAB
     Indication: OSTEOARTHRITIS
     Dosage: ?          QUANTITY:1 SHOT;OTHER ROUTE:1 SHOT?
     Dates: start: 20191106, end: 20191206
  4. HORMONE [Concomitant]
     Active Substance: UNSPECIFIED INGREDIENT
  5. OXCARBAZEPINE. [Concomitant]
     Active Substance: OXCARBAZEPINE
  6. HUMIRA [Suspect]
     Active Substance: ADALIMUMAB
     Indication: RHEUMATOID ARTHRITIS
     Dosage: ?          QUANTITY:1 SHOT;OTHER ROUTE:1 SHOT?
     Dates: start: 20191106, end: 20191206
  7. TUMERIC [Concomitant]
     Active Substance: HERBALS\TURMERIC
  8. LOSARTIN [Concomitant]
     Active Substance: LOSARTAN
  9. HUMIRA [Suspect]
     Active Substance: ADALIMUMAB
     Indication: PSORIATIC ARTHROPATHY
     Dosage: ?          QUANTITY:1 SHOT;OTHER ROUTE:1 SHOT?
     Dates: start: 20191106, end: 20191206

REACTIONS (7)
  - Seizure [None]
  - Dyspnoea [None]
  - Chest pain [None]
  - Dehydration [None]
  - Impaired work ability [None]
  - Rash [None]
  - Gastrointestinal viral infection [None]

NARRATIVE: CASE EVENT DATE: 20191106
